FAERS Safety Report 16168918 (Version 1)
Quarter: 2019Q2

REPORT INFORMATION
  Report Type: Spontaneous
  Country: US (occurrence: US)
  Receive Date: 20190408
  Receipt Date: 20190408
  Transmission Date: 20190711
  Serious: No
  Sender: FDA-Public Use
  Company Number: US-MICRO LABS LIMITED-ML2019-00564

PATIENT
  Age: 62 Year
  Sex: Female

DRUGS (7)
  1. ZYDUS TELMISARTAN 40 MG TABLETS [Suspect]
     Active Substance: TELMISARTAN
     Indication: HYPERTENSION
     Route: 048
     Dates: start: 20190111, end: 20190112
  2. MICARDIS [Suspect]
     Active Substance: TELMISARTAN
     Indication: HYPERTENSION
  3. LANSOPRAZOLE. [Concomitant]
     Active Substance: LANSOPRAZOLE
     Indication: DYSPEPSIA
  4. TELMISARTAN. [Suspect]
     Active Substance: TELMISARTAN
     Dosage: 40-80 MG DAILY
     Route: 048
  5. DUEXIS [Concomitant]
     Active Substance: FAMOTIDINE\IBUPROFEN
     Indication: ARTHRALGIA
  6. TELMISARTAN. [Suspect]
     Active Substance: TELMISARTAN
     Indication: HYPERTENSION
     Dosage: 40-80 MG DAILY
     Route: 048
  7. TELMISARTAN. [Suspect]
     Active Substance: TELMISARTAN
     Dosage: 40-80 MG DAILY
     Route: 048
     Dates: start: 20190112

REACTIONS (4)
  - Dyspepsia [Not Recovered/Not Resolved]
  - Oropharyngeal pain [Recovered/Resolved]
  - Chest pain [Recovered/Resolved]
  - Abdominal pain upper [Recovered/Resolved]

NARRATIVE: CASE EVENT DATE: 20190101
